FAERS Safety Report 13486068 (Version 1)
Quarter: 2017Q2

REPORT INFORMATION
  Report Type: Spontaneous
  Country: CN (occurrence: CN)
  Receive Date: 20170426
  Receipt Date: 20170426
  Transmission Date: 20170830
  Serious: Yes (Other)
  Sender: FDA-Public Use
  Company Number: CN-PFIZER INC-2017179546

PATIENT
  Age: 82 Year
  Sex: Female

DRUGS (2)
  1. BETALOC [Suspect]
     Active Substance: METOPROLOL TARTRATE
     Indication: ARRHYTHMIA
     Dosage: 47.5 MG, DAILY
     Route: 048
     Dates: start: 20170110, end: 20170126
  2. CORDARONE [Suspect]
     Active Substance: AMIODARONE HYDROCHLORIDE
     Indication: ARRHYTHMIA
     Dosage: 0.2 G, 3X/DAY
     Route: 048
     Dates: start: 20170110, end: 20170126

REACTIONS (7)
  - Asthenia [Recovering/Resolving]
  - Electrocardiogram QT prolonged [Recovering/Resolving]
  - Bradycardia [Recovering/Resolving]
  - Abdominal pain [Recovering/Resolving]
  - Dizziness [Recovering/Resolving]
  - Chest discomfort [Recovering/Resolving]
  - Decreased appetite [Recovering/Resolving]

NARRATIVE: CASE EVENT DATE: 2017
